FAERS Safety Report 8332162-8 (Version None)
Quarter: 2012Q2

REPORT INFORMATION
  Report Type: 
  Country: None (occurrence: None)
  Receive Date: 20120503
  Receipt Date: 20120424
  Transmission Date: 20120825
  Serious: Yes (Hospitalization)
  Sender: FDA-Public Use
  Company Number: US-AMGEN-USASP2012025885

PATIENT
  Age: 68 Year
  Sex: Female

DRUGS (1)
  1. ENBREL [Suspect]
     Indication: PSORIASIS
     Dosage: 50 MG, QWK
     Dates: start: 20090201

REACTIONS (8)
  - CAROTID ARTERY OCCLUSION [None]
  - BLOOD GLUCOSE DECREASED [None]
  - HERPES ZOSTER [None]
  - PSORIASIS [None]
  - CEREBROVASCULAR ACCIDENT [None]
  - THERAPEUTIC RESPONSE DECREASED [None]
  - PRURITUS GENERALISED [None]
  - VIITH NERVE PARALYSIS [None]
